FAERS Safety Report 14530811 (Version 2)
Quarter: 2018Q1

REPORT INFORMATION
  Report Type: Spontaneous
  Country: US (occurrence: US)
  Receive Date: 20180214
  Receipt Date: 20180228
  Transmission Date: 20180509
  Serious: Yes (Other)
  Sender: FDA-Public Use
  Company Number: US-PFIZER INC-2018056485

PATIENT
  Sex: Male
  Weight: 108.84 kg

DRUGS (1)
  1. VIAGRA [Suspect]
     Active Substance: SILDENAFIL CITRATE
     Indication: PITUITARY ENLARGEMENT
     Dosage: 100 MG, AS NEEDED
     Route: 048

REACTIONS (4)
  - Sinusitis [Unknown]
  - Prostate cancer [Unknown]
  - Drug ineffective [Not Recovered/Not Resolved]
  - Product use in unapproved indication [Unknown]

NARRATIVE: CASE EVENT DATE: 201802
